FAERS Safety Report 7759113-9 (Version None)
Quarter: 2011Q3

REPORT INFORMATION
  Report Type: 
  Country: None (occurrence: None)
  Receive Date: 20110915
  Receipt Date: 20110907
  Transmission Date: 20111222
  Serious: Yes (Hospitalization)
  Sender: FDA-Public Use
  Company Number: 122959

PATIENT
  Age: 59 Year
  Sex: Male

DRUGS (1)
  1. CERUBIDINE [Suspect]
     Indication: ACUTE MYELOID LEUKAEMIA
     Dates: start: 20080926, end: 20080928

REACTIONS (4)
  - HEPATOSPLENIC CANDIDIASIS [None]
  - HEPATITIS CHOLESTATIC [None]
  - HEPATIC CANDIDIASIS [None]
  - LIVER ABSCESS [None]
